FAERS Safety Report 6210716-2 (Version None)
Quarter: 2009Q2

REPORT INFORMATION
  Report Type: 
  Country: None (occurrence: None)
  Receive Date: 20090528
  Receipt Date: 20090528
  Transmission Date: 20091009
  Serious: No
  Sender: FDA-Public Use
  Company Number: None

PATIENT
  Age: 43 Year
  Sex: Male
  Weight: 113.3993 kg

DRUGS (1)
  1. PROTOPIC [Suspect]
     Indication: VITILIGO
     Dosage: APPLY TO AFFECTED SKIN WITH 2 IMES A DAY
     Dates: start: 20090508, end: 20090526

REACTIONS (1)
  - INFLUENZA LIKE ILLNESS [None]
